FAERS Safety Report 6262423-8 (Version None)
Quarter: 2009Q3

REPORT INFORMATION
  Report Type: 
  Country: None (occurrence: None)
  Receive Date: 20090709
  Receipt Date: 20090626
  Transmission Date: 20100115
  Serious: Yes (Other)
  Sender: FDA-Public Use
  Company Number: FR-AVENTIS-200912491FR

PATIENT
  Age: 53 Year
  Sex: Female

DRUGS (2)
  1. LANTUS [Suspect]
     Route: 058
     Dates: start: 20030101
  2. INSULIN RAPID [Concomitant]

REACTIONS (2)
  - BREAST CANCER FEMALE [None]
  - METASTASIS [None]
